FAERS Safety Report 15768411 (Version 2)
Quarter: 2019Q1

REPORT INFORMATION
  Report Type: Spontaneous
  Country: DE (occurrence: DE)
  Receive Date: 20181227
  Receipt Date: 20190319
  Transmission Date: 20190417
  Serious: Yes (Other)
  Sender: FDA-Public Use
  Company Number: DE-AMGEN-DEUSP2018183190

PATIENT
  Age: 78 Year
  Sex: Female
  Weight: 42 kg

DRUGS (1)
  1. PROLIA [Suspect]
     Active Substance: DENOSUMAB
     Indication: OSTEOPOROSIS
     Dosage: UNK, Q6MO
     Route: 065

REACTIONS (5)
  - Fracture [Recovering/Resolving]
  - Eating disorder [Not Recovered/Not Resolved]
  - Pancreatitis [Unknown]
  - Lumbar vertebral fracture [Unknown]
  - Thoracic vertebral fracture [Recovering/Resolving]

NARRATIVE: CASE EVENT DATE: 201805
